FAERS Safety Report 4544844-4 (Version None)
Quarter: 2005Q1

REPORT INFORMATION
  Report Type: 
  Country: None (occurrence: None)
  Receive Date: 20050104
  Receipt Date: 20041222
  Transmission Date: 20050727
  Serious: Yes (Other)
  Sender: FDA-Public Use
  Company Number: DEU-2004-0001191

PATIENT
  Age: 40 Year
  Sex: Female

DRUGS (2)
  1. OXYCODONE HCL [Suspect]
     Indication: PAIN
     Dosage: 10 MG, BID, ORAL
     Route: 048
     Dates: start: 20040101
  2. MOBEC ^BOEHRINGER INGELHEIM^ (MELOXICAM) [Concomitant]

REACTIONS (1)
  - TIC [None]
